FAERS Safety Report 7379973-3 (Version None)
Quarter: 2011Q1

REPORT INFORMATION
  Report Type: 
  Country: None (occurrence: None)
  Receive Date: 20110329
  Receipt Date: 20110324
  Transmission Date: 20110831
  Serious: Yes (Death, Other)
  Sender: FDA-Public Use
  Company Number: PHHY2011JP24218

PATIENT
  Age: 78 Year
  Sex: Female

DRUGS (4)
  1. DILTIAZEM HCL [Concomitant]
     Dosage: 1800 MG, UNK
     Route: 048
     Dates: start: 20110323
  2. ATENOLOL [Concomitant]
     Dosage: 800 MG, UNK
     Route: 048
     Dates: start: 20110323
  3. DIOVAN [Suspect]
     Indication: HYPERTENSION
     Dosage: 2240 MG, DAILY
     Route: 048
     Dates: start: 20110323, end: 20110323
  4. NIFEDIPINE [Concomitant]
     Dosage: 200 MG, UNK
     Route: 048
     Dates: start: 20110323

REACTIONS (4)
  - ACCIDENTAL OVERDOSE [None]
  - BLOOD PRESSURE SYSTOLIC DECREASED [None]
  - ANAEMIA [None]
  - DIZZINESS [None]
